FAERS Safety Report 10268983 (Version 1)
Quarter: 2014Q2

REPORT INFORMATION
  Report Type: Spontaneous
  Country: FR (occurrence: FR)
  Receive Date: 20140630
  Receipt Date: 20140630
  Transmission Date: 20141212
  Serious: Yes (Other)
  Sender: FDA-Public Use
  Company Number: FR-BAXTER-2014BAX035165

PATIENT
  Age: 67 Year
  Sex: Male

DRUGS (1)
  1. KIOVIG, 100 MG/ML, SOLUTION POUR PERFUSION [Suspect]
     Indication: MULTIFOCAL MOTOR NEUROPATHY
     Route: 042

REACTIONS (1)
  - Drug effect decreased [Not Recovered/Not Resolved]
